FAERS Safety Report 7382526-4 (Version None)
Quarter: 2011Q1

REPORT INFORMATION
  Report Type: 
  Country: None (occurrence: None)
  Receive Date: 20110329
  Receipt Date: 20110322
  Transmission Date: 20110831
  Serious: Yes (Death, Hospitalization, Other)
  Sender: FDA-Public Use
  Company Number: FR-BAYER-201033191GPV

PATIENT
  Sex: Male

DRUGS (9)
  1. IMODIUM [Concomitant]
     Indication: DIARRHOEA
     Route: 048
     Dates: start: 20100628, end: 20100630
  2. ALDACTONE [Concomitant]
     Dosage: 25 MG (DAILY DOSE), QD, ORAL
     Route: 048
     Dates: end: 20100630
  3. FOLIC ACID [Concomitant]
     Indication: HAEMORRHAGE PROPHYLAXIS
     Dosage: 20 MG (DAILY DOSE), QD, ORAL
     Route: 048
     Dates: end: 20100630
  4. RAMIPRIL [Concomitant]
     Indication: HYPERTENSION
     Dosage: 25 MG (DAILY DOSE), QD, ORAL
     Route: 048
     Dates: end: 20100630
  5. SORAFENIB (RAF KINASE INHIBITOR) [Suspect]
     Indication: HEPATIC NEOPLASM MALIGNANT
     Dosage: 400 MG, BID
     Dates: start: 20100608, end: 20100630
  6. HUMALOG [Concomitant]
     Indication: DIABETES MELLITUS
     Dosage: 78 U (DAILY DOSE), QD, SUBCUTANEOUS
     Route: 058
     Dates: end: 20100630
  7. PRIMPERAN TAB [Concomitant]
     Indication: PAIN
     Dosage: 3 TABLETS
     Route: 048
     Dates: end: 20100630
  8. TRAMADOL HCL [Concomitant]
     Indication: PAIN
     Dosage: 22 MG (DAILY DOSE), QD, ORAL
     Route: 048
     Dates: end: 20100630
  9. ERLOTINIB HYDROCHLORIDE [Suspect]
     Indication: HEPATIC NEOPLASM MALIGNANT
     Dosage: 150 MG, QD
     Dates: start: 20100608, end: 20100630

REACTIONS (2)
  - GASTROINTESTINAL HAEMORRHAGE [None]
  - ENCEPHALOPATHY [None]
